FAERS Safety Report 9002942 (Version 1)
Quarter: 2012Q4

REPORT INFORMATION
  Report Type: Spontaneous
  Country: AU (occurrence: None)
  Receive Date: 20121226
  Receipt Date: 20121226
  Transmission Date: 20130627
  Serious: Yes (Hospitalization, Other)
  Sender: FDA-Public Use
  Company Number: 2012000281

PATIENT
  Age: 72 Year
  Sex: Male
  Weight: 105 kg

DRUGS (2)
  1. ACEON (PERINDOPRIL ERBUMINE) TABLET [Suspect]
     Indication: PRODUCT USED FOR UNKNOWN INDICATION
     Route: 048
     Dates: start: 20110615, end: 20120924
  2. AMIODARONE HYDROCHLORIDE [Suspect]
     Indication: ARRHYTHMIA
     Route: 048
     Dates: start: 20110815

REACTIONS (6)
  - Urticaria [None]
  - Anaphylactic reaction [None]
  - Loss of consciousness [None]
  - Incorrect dose administered [None]
  - Swelling face [None]
  - Blood pressure decreased [None]
